FAERS Safety Report 6599403-9 (Version None)
Quarter: 2010Q1

REPORT INFORMATION
  Report Type: 
  Country: None (occurrence: None)
  Receive Date: 20100217
  Receipt Date: 20100205
  Transmission Date: 20100710
  Serious: Yes (Other)
  Sender: FDA-Public Use
  Company Number: A0816005A

PATIENT
  Age: 65 Year
  Sex: Male

DRUGS (1)
  1. UREA PEROXIDE [Suspect]
     Dosage: AURAL

REACTIONS (8)
  - DEAFNESS [None]
  - EAR DISCOMFORT [None]
  - EAR HAEMORRHAGE [None]
  - EAR INFECTION [None]
  - HYPOACUSIS [None]
  - LOCALISED INFECTION [None]
  - OTORRHOEA [None]
  - TYMPANIC MEMBRANE PERFORATION [None]
